FAERS Safety Report 13325043 (Version 1)
Quarter: 2017Q1

REPORT INFORMATION
  Report Type: Spontaneous
  Country: PT (occurrence: ES)
  Receive Date: 20170310
  Receipt Date: 20170310
  Transmission Date: 20170428
  Serious: Yes (Other)
  Sender: FDA-Public Use
  Company Number: PT-SUNOVION-2017SUN001094

PATIENT

DRUGS (7)
  1. NOIAFREN [Concomitant]
     Active Substance: CLOBAZAM
     Dosage: 10 MG, 2X / DAY
     Route: 048
     Dates: start: 201310
  2. ZEBINIX [Suspect]
     Active Substance: ESLICARBAZEPINE ACETATE
     Indication: EPILEPSY
     Dosage: 400-0-800 MG, 2X / DAY
     Route: 048
     Dates: start: 201204, end: 201403
  3. DEPAKINE CHRONO [Interacting]
     Active Substance: VALPROATE SODIUM
     Indication: EPILEPSY
     Dosage: 1500 MG, 1X / DAY
     Route: 048
     Dates: start: 201204, end: 201310
  4. ZEBINIX [Interacting]
     Active Substance: ESLICARBAZEPINE ACETATE
     Dosage: 800 MG, 2X / DAY
     Route: 048
     Dates: start: 201403, end: 201611
  5. DEPAKINE CHRONO [Interacting]
     Active Substance: VALPROATE SODIUM
     Dosage: 500 MG, 2X / DAY
     Route: 048
     Dates: start: 201310, end: 201512
  6. DEPAKINE CHRONO [Interacting]
     Active Substance: VALPROATE SODIUM
     Dosage: 500 MG, 1X / DAY
     Route: 048
     Dates: start: 201512
  7. NOIAFREN [Concomitant]
     Active Substance: CLOBAZAM
     Indication: EPILEPSY
     Dosage: 10 MG, 1X / DAY
     Route: 048
     Dates: start: 201204, end: 201310

REACTIONS (6)
  - Inappropriate schedule of drug administration [Unknown]
  - Hyponatraemia [Recovered/Resolved]
  - Inappropriate antidiuretic hormone secretion [Recovered/Resolved]
  - Drug interaction [Unknown]
  - Drug dose titration not performed [Unknown]
  - Overdose [Unknown]

NARRATIVE: CASE EVENT DATE: 201204
